FAERS Safety Report 5989054-9 (Version None)
Quarter: 2008Q4

REPORT INFORMATION
  Report Type: 
  Country: None (occurrence: None)
  Receive Date: 20081210
  Receipt Date: 20081203
  Transmission Date: 20090506
  Serious: Yes (Death)
  Sender: FDA-Public Use
  Company Number: BE-GENENTECH-271719

PATIENT
  Sex: Male
  Weight: 70 kg

DRUGS (25)
  1. BLINDED ANTI-CD40 [Suspect]
     Indication: DIFFUSE LARGE B-CELL LYMPHOMA
     Dosage: 2 MG, X1
     Route: 042
     Dates: start: 20080905, end: 20080905
  2. BLINDED PLACEBO [Suspect]
     Indication: DIFFUSE LARGE B-CELL LYMPHOMA
     Dosage: 2 MG, X1
     Route: 042
     Dates: start: 20080905, end: 20080905
  3. BLINDED ANTI-CD40 [Suspect]
     Dosage: 4 MG, X1
     Route: 042
     Dates: start: 20080908, end: 20080908
  4. BLINDED PLACEBO [Suspect]
     Dosage: 4 MG, X1
     Route: 042
     Dates: start: 20080908, end: 20080908
  5. BLINDED ANTI-CD40 [Suspect]
     Dosage: 8 MG, 1/WEEK
     Route: 042
     Dates: start: 20080913, end: 20081103
  6. BLINDED PLACEBO [Suspect]
     Dosage: 8 MG, 1/WEEK
     Route: 042
     Dates: start: 20080913, end: 20081103
  7. RITUXAN [Suspect]
     Indication: DIFFUSE LARGE B-CELL LYMPHOMA
     Dosage: 375 MG/M2, Q3W
     Route: 042
     Dates: start: 20080904, end: 20081020
  8. ETOPOSIDE [Suspect]
     Indication: DIFFUSE LARGE B-CELL LYMPHOMA
     Dosage: 100 MG/M2, Q3W
     Route: 042
     Dates: start: 20080906, end: 20081020
  9. ETOPOSIDE [Suspect]
     Dosage: 100 MG/M2, Q3W
     Route: 042
     Dates: start: 20080907, end: 20081021
  10. ETOPOSIDE [Suspect]
     Dosage: 100 MG/M2, Q3W
     Route: 042
     Dates: start: 20080908, end: 20081022
  11. CARBOPLATIN [Suspect]
     Indication: DIFFUSE LARGE B-CELL LYMPHOMA
     Dosage: 5 AUC, Q3W
     Route: 042
     Dates: start: 20080907, end: 20081021
  12. IFOSFAMIDE [Suspect]
     Indication: DIFFUSE LARGE B-CELL LYMPHOMA
     Dosage: 5 G/M2, Q3W
     Route: 042
     Dates: start: 20080907, end: 20081021
  13. ZANTAC [Concomitant]
     Indication: DRUG USE FOR UNKNOWN INDICATION
     Dosage: UNK
     Dates: start: 20080904
  14. ZOVIRAX [Concomitant]
     Indication: DRUG USE FOR UNKNOWN INDICATION
     Dosage: UNK
     Dates: start: 20080906
  15. DIFLUCAN [Concomitant]
     Indication: DRUG USE FOR UNKNOWN INDICATION
     Dosage: UNK
     Dates: start: 20080905
  16. BACTRIM [Concomitant]
     Indication: DRUG USE FOR UNKNOWN INDICATION
     Dosage: UNK
     Dates: start: 20080909
  17. TAVEGYL [Concomitant]
     Indication: DRUG USE FOR UNKNOWN INDICATION
     Dosage: UNK
     Dates: start: 20080904
  18. DEXAMETHASONE [Concomitant]
     Indication: DRUG USE FOR UNKNOWN INDICATION
     Dosage: UNK
     Dates: start: 20080904
  19. DENTIO (UNK INGREDIENTS) [Concomitant]
     Indication: DRUG USE FOR UNKNOWN INDICATION
     Dosage: UNK
     Dates: start: 20080905
  20. ZYLORIC [Concomitant]
     Indication: DRUG USE FOR UNKNOWN INDICATION
     Dosage: UNK
     Dates: start: 20080910
  21. DAFALGAN [Concomitant]
     Indication: DRUG USE FOR UNKNOWN INDICATION
     Dosage: UNK
     Dates: start: 20080902
  22. ZANTAC [Concomitant]
     Dosage: UNK
     Dates: start: 20080910
  23. EMCORETIC [Concomitant]
     Indication: DRUG USE FOR UNKNOWN INDICATION
     Dosage: UNK
     Dates: start: 19990101
  24. DAFALGAN [Concomitant]
     Dosage: UNK
     Dates: start: 20080904
  25. MEDROL [Concomitant]
     Indication: DRUG USE FOR UNKNOWN INDICATION
     Dosage: UNK
     Dates: start: 20081107

REACTIONS (1)
  - CARDIO-RESPIRATORY ARREST [None]
